FAERS Safety Report 5792532-9 (Version None)
Quarter: 2008Q3

REPORT INFORMATION
  Report Type: 
  Country: None (occurrence: None)
  Receive Date: 20080624
  Receipt Date: 20080610
  Transmission Date: 20090109
  Serious: Yes (Hospitalization, Other)
  Sender: FDA-Public Use
  Company Number: 2008S1010039

PATIENT
  Age: 45 Year
  Sex: Male
  Weight: 56 kg

DRUGS (2)
  1. SUNITINIB MALATE (SUNITINIB MALATE) (50 MG) [Suspect]
     Indication: NON-SMALL CELL LUNG CANCER
     Dosage: 50 MG; WEEKLY;
     Dates: start: 20060418, end: 20060516
  2. FENTANYL TRANSDERMAL SYSTEM [Suspect]

REACTIONS (6)
  - CONFUSIONAL STATE [None]
  - DISEASE PROGRESSION [None]
  - HYPERCALCAEMIA [None]
  - NAUSEA [None]
  - OVERDOSE [None]
  - VOMITING [None]
